FAERS Safety Report 6882600-2 (Version None)
Quarter: 2010Q3

REPORT INFORMATION
  Report Type: 
  Country: None (occurrence: None)
  Receive Date: 20100729
  Receipt Date: 20100716
  Transmission Date: 20110219
  Serious: Yes (Death, Hospitalization)
  Sender: FDA-Public Use
  Company Number: US-ROCHE-702473

PATIENT
  Sex: Female
  Weight: 70.3 kg

DRUGS (5)
  1. BEVACIZUMAB [Suspect]
     Dosage: LAST DOSE ON 05 MAY 2010
     Route: 042
     Dates: start: 20090330, end: 20100505
  2. CAPECITABINE [Suspect]
     Dosage: 1500 MG AM AND 1000 MG PM; FREQUENCY: 14 DAYS ON 7 DAYS OFF
     Route: 048
     Dates: start: 20100406
  3. ARANESP [Concomitant]
  4. RITALIN [Concomitant]
     Indication: SOMNOLENCE
     Route: 048
  5. LORTAB [Concomitant]
     Indication: PAIN
     Route: 048

REACTIONS (2)
  - DEEP VEIN THROMBOSIS [None]
  - MALIGNANT NEOPLASM PROGRESSION [None]
